FAERS Safety Report 12450617 (Version 2)
Quarter: 2016Q3

REPORT INFORMATION
  Report Type: Spontaneous
  Country: PT (occurrence: PT)
  Receive Date: 20160609
  Receipt Date: 20160719
  Transmission Date: 20161109
  Serious: Yes (Other)
  Sender: FDA-Public Use
  Company Number: PT-ACTAVIS-2016-11820

PATIENT
  Age: 66 Year
  Sex: Male
  Weight: 68 kg

DRUGS (10)
  1. DEXAMETASONA                       /00016001/ [Concomitant]
     Active Substance: DEXAMETHASONE
     Indication: ALLERGY PROPHYLAXIS
     Dosage: 10 MG, DAILY (PR?-MEDICA??O - PREMEDICATION)
     Route: 042
     Dates: start: 20160519, end: 20160519
  2. DOCETAXEL AUROVITAS [Suspect]
     Active Substance: DOCETAXEL
     Indication: SQUAMOUS CELL CARCINOMA
     Dosage: 128.25 MG, 1/ THREE WEEKS
     Route: 042
     Dates: start: 20160519, end: 20160519
  3. RANITIDINE. [Concomitant]
     Active Substance: RANITIDINE
     Indication: ALLERGY PROPHYLAXIS
     Dosage: 50 MG, DAILY (PR?-MEDICA??O - PREMEDICATION)
     Route: 042
     Dates: start: 20160519, end: 20160519
  4. RANITIDINE. [Concomitant]
     Active Substance: RANITIDINE
     Dosage: UNK; (PR?-MEDICA??O - PREMEDICATION); SOLUTION FOR INJECTION
     Route: 042
     Dates: start: 20160609, end: 20160609
  5. PREDNISOLONA                       /00016201/ [Concomitant]
     Indication: ALLERGY PROPHYLAXIS
     Dosage: 40 MG, 1/ TWO DAYS (PR?-MEDICA??O - PREMEDICATION)
     Route: 048
     Dates: start: 20160518, end: 20160519
  6. CLEMASTINE [Concomitant]
     Active Substance: CLEMASTINE
     Indication: ALLERGY PROPHYLAXIS
     Dosage: 2 MG, DAILY (PR?-MEDICA??O - PREMEDICATION)
     Route: 042
     Dates: start: 20160519, end: 20160519
  7. DOCETAXEL. [Suspect]
     Active Substance: DOCETAXEL
     Indication: LUNG NEOPLASM MALIGNANT
     Dosage: 128.25 MG, 1/ THREE WEEKS
     Route: 042
     Dates: start: 20160609, end: 20160609
  8. CLEMASTINE [Concomitant]
     Active Substance: CLEMASTINE
     Dosage: UNK; (PR?-MEDICA??O - PREMEDICATION)^ SOLUTION FOR INJECTION
     Route: 042
     Dates: start: 20160609, end: 20160609
  9. ONDANSETROM                        /00955301/ [Concomitant]
     Active Substance: ONDANSETRON
     Indication: ALLERGY PROPHYLAXIS
     Dosage: 8 MG, DAILY (PR?-MEDICA??O - PREMEDICATION)
     Route: 042
     Dates: start: 20160519, end: 20160519
  10. DEXAMETASONA                       /00016001/ [Concomitant]
     Active Substance: DEXAMETHASONE
     Dosage: 20 MG, DAILY; (PR?-MEDICA??O - PREMEDICATION); INJECTABLE SOLUTION, 20 MG
     Route: 042
     Dates: start: 20160609, end: 20160609

REACTIONS (4)
  - Chest discomfort [Recovered/Resolved]
  - Malaise [Recovered/Resolved]
  - Erythema [Recovered/Resolved]
  - Erythema [Recovered/Resolved]

NARRATIVE: CASE EVENT DATE: 20160519
